FAERS Safety Report 25379279 (Version 3)
Quarter: 2025Q3

REPORT INFORMATION
  Report Type: Spontaneous
  Country: US (occurrence: US)
  Receive Date: 20250530
  Receipt Date: 20250709
  Transmission Date: 20251021
  Serious: Yes (Hospitalization)
  Sender: SANOFI AVENTIS
  Company Number: US-SA-2025SA153935

PATIENT
  Sex: Female

DRUGS (19)
  1. DUPIXENT [Suspect]
     Active Substance: DUPILUMAB
     Indication: Asthma
     Dosage: 300 MG, QOW
     Route: 058
     Dates: start: 20210331, end: 202502
  2. DUPIXENT [Suspect]
     Active Substance: DUPILUMAB
     Dosage: 300 MG, QOW
     Route: 058
     Dates: start: 2025
  3. ALBUTEROL SULFATE [Concomitant]
     Active Substance: ALBUTEROL SULFATE
  4. AMLODIPINE [Concomitant]
     Active Substance: AMLODIPINE BESYLATE
  5. AMLODIPINE [Concomitant]
     Active Substance: AMLODIPINE BESYLATE
  6. ATORVASTATIN [Concomitant]
     Active Substance: ATORVASTATIN
  7. AZELASTINE [Concomitant]
     Active Substance: AZELASTINE
  8. BISACODYL [Concomitant]
     Active Substance: BISACODYL
  9. EPINEPHRINE [Concomitant]
     Active Substance: EPINEPHRINE
  10. FERROUS SULFATE [Concomitant]
     Active Substance: FERROUS SULFATE
  11. LOSARTAN POTASSIUM [Concomitant]
     Active Substance: LOSARTAN POTASSIUM
  12. METFORMIN [Concomitant]
     Active Substance: METFORMIN HYDROCHLORIDE
  13. MONTELUKAST [Concomitant]
     Active Substance: MONTELUKAST
  14. PREDNISONE [Concomitant]
     Active Substance: PREDNISONE
  15. SPIRIVA [Concomitant]
     Active Substance: TIOTROPIUM BROMIDE MONOHYDRATE
  16. VENTOLIN HFA [Concomitant]
     Active Substance: ALBUTEROL SULFATE
  17. HYDROCHLOROTHIAZIDE [Concomitant]
     Active Substance: HYDROCHLOROTHIAZIDE
  18. ALBUTEROL SULFATE [Concomitant]
     Active Substance: ALBUTEROL SULFATE
  19. BUDESONIDE\FORMOTEROL [Concomitant]
     Active Substance: BUDESONIDE\FORMOTEROL

REACTIONS (4)
  - Gastrointestinal scarring [Not Recovered/Not Resolved]
  - Asthma [Not Recovered/Not Resolved]
  - Hysterectomy [Not Recovered/Not Resolved]
  - Injection site reaction [Unknown]
